FAERS Safety Report 6254253-8 (Version None)
Quarter: 2009Q2

REPORT INFORMATION
  Report Type: 
  Country: None (occurrence: None)
  Receive Date: 20090630
  Receipt Date: 20090630
  Transmission Date: 20091009
  Serious: Yes (Other)
  Sender: FDA-Public Use
  Company Number: None

PATIENT
  Sex: Female
  Weight: 65.7716 kg

DRUGS (1)
  1. LAMICTAL [Suspect]
     Indication: EPILEPSY
     Dosage: 25MG 1 A DAY PO
     Route: 048
     Dates: start: 20090616, end: 20090627

REACTIONS (7)
  - CONSTIPATION [None]
  - HEADACHE [None]
  - LIP SWELLING [None]
  - OROPHARYNGEAL PAIN [None]
  - PARAESTHESIA ORAL [None]
  - RASH ERYTHEMATOUS [None]
  - RASH GENERALISED [None]
